FAERS Safety Report 16347066 (Version 1)
Quarter: 2019Q2

REPORT INFORMATION
  Report Type: Spontaneous
  Country: US (occurrence: US)
  Receive Date: 20190523
  Receipt Date: 20190523
  Transmission Date: 20190711
  Serious: No
  Sender: FDA-Public Use
  Company Number: US-TARO-2018TAR00502

PATIENT
  Sex: Female

DRUGS (1)
  1. IMIQUIMOD CREAM 5% [Suspect]
     Active Substance: IMIQUIMOD
     Indication: BASAL CELL CARCINOMA
     Dosage: UNK
     Route: 061
     Dates: start: 201806

REACTIONS (4)
  - Application site scab [Not Recovered/Not Resolved]
  - Off label use [Unknown]
  - Application site pruritus [Not Recovered/Not Resolved]
  - Application site erythema [Not Recovered/Not Resolved]

NARRATIVE: CASE EVENT DATE: 2018
